FAERS Safety Report 21479275 (Version 2)
Quarter: 2023Q1

REPORT INFORMATION
  Report Type: Spontaneous
  Country: US (occurrence: US)
  Receive Date: 20221019
  Receipt Date: 20230323
  Transmission Date: 20230417
  Serious: No
  Sender: FDA-Public Use
  Company Number: US-ALLERGAN-2230518US

PATIENT
  Age: 80 Year
  Sex: Female
  Weight: 49.895 kg

DRUGS (6)
  1. ALPHAGAN P [Suspect]
     Active Substance: BRIMONIDINE TARTRATE
     Indication: Intraocular pressure increased
     Dosage: 2 GTT, Q8HR
     Route: 047
     Dates: start: 202209
  2. ALPHAGAN P [Suspect]
     Active Substance: BRIMONIDINE TARTRATE
     Indication: Glaucoma
  3. CORTISONE [Concomitant]
     Active Substance: CORTISONE
     Indication: Corneal oedema
  4. REFRESH PLUS [Concomitant]
     Active Substance: CARBOXYMETHYLCELLULOSE SODIUM
     Indication: Dry eye
  5. PROLENSA [Concomitant]
     Active Substance: BROMFENAC SODIUM
     Indication: Product used for unknown indication
  6. ZIOPTAN [Concomitant]
     Active Substance: TAFLUPROST
     Indication: Product used for unknown indication

REACTIONS (16)
  - Ocular hyperaemia [Recovering/Resolving]
  - Facial pain [Recovered/Resolved]
  - Nightmare [Unknown]
  - Weight decreased [Unknown]
  - Eye inflammation [Recovering/Resolving]
  - Muscle twitching [Not Recovered/Not Resolved]
  - Decreased appetite [Unknown]
  - Malaise [Unknown]
  - Condition aggravated [Recovering/Resolving]
  - Heart rate irregular [Unknown]
  - Nail discolouration [Unknown]
  - Dyspnoea [Unknown]
  - Hypertension [Unknown]
  - Dry eye [Unknown]
  - Eye irritation [Recovering/Resolving]
  - Product container issue [Unknown]

NARRATIVE: CASE EVENT DATE: 20220901
